FAERS Safety Report 8210326-1 (Version None)
Quarter: 2012Q1

REPORT INFORMATION
  Report Type: 
  Country: None (occurrence: None)
  Receive Date: 20120314
  Receipt Date: 20120306
  Transmission Date: 20120608
  Serious: Yes (Other)
  Sender: FDA-Public Use
  Company Number: US-ROCHE-784543

PATIENT
  Sex: Male
  Weight: 143.01 kg

DRUGS (2)
  1. CEPHALEXIN [Concomitant]
     Indication: BRONCHITIS
  2. ACCUTANE [Suspect]
     Indication: ACNE
     Route: 065
     Dates: start: 20030701, end: 20040501

REACTIONS (11)
  - CROHN'S DISEASE [None]
  - CHEILITIS [None]
  - INGROWING NAIL [None]
  - STRESS [None]
  - DIARRHOEA [None]
  - UPPER RESPIRATORY TRACT INFECTION [None]
  - COLITIS ULCERATIVE [None]
  - DEPRESSION [None]
  - EPISTAXIS [None]
  - IRRITABLE BOWEL SYNDROME [None]
  - INFLAMMATORY BOWEL DISEASE [None]
